FAERS Safety Report 6788288-3 (Version None)
Quarter: 2010Q2

REPORT INFORMATION
  Report Type: 
  Country: None (occurrence: None)
  Receive Date: 20100623
  Receipt Date: 20080215
  Transmission Date: 20101027
  Serious: No
  Sender: FDA-Public Use
  Company Number: US-PFIZER INC-2008012751

PATIENT
  Age: 64 Year
  Sex: Female
  Weight: 62.727 kg

DRUGS (3)
  1. DIFLUCAN [Suspect]
     Indication: FUNGAL INFECTION
     Dates: start: 20080101, end: 20080101
  2. AZITHROMYCIN [Suspect]
     Indication: SINUSITIS
     Dates: start: 20080101, end: 20080101
  3. NIFEDIPINE [Concomitant]

REACTIONS (2)
  - FUNGAL INFECTION [None]
  - NAUSEA [None]
